FAERS Safety Report 15153586 (Version 2)
Quarter: 2018Q3

REPORT INFORMATION
  Report Type: Spontaneous
  Country: IT (occurrence: IT)
  Receive Date: 20180717
  Receipt Date: 20180806
  Transmission Date: 20181010
  Serious: Yes (Hospitalization, Other)
  Sender: FDA-Public Use
  Company Number: GXKR2010IT00629

PATIENT
  Age: 65 Year
  Sex: Female

DRUGS (8)
  1. PAROXETINE. [Concomitant]
     Active Substance: PAROXETINE
     Indication: DEPRESSION
     Dosage: 10 MG, QD
     Route: 065
  2. DEXAMETHASONE. [Concomitant]
     Active Substance: DEXAMETHASONE
     Indication: PRODUCT USED FOR UNKNOWN INDICATION
     Dosage: 20 MG, BID
     Route: 042
  3. CEFAZOLIN [Concomitant]
     Active Substance: CEFAZOLIN
     Indication: PRODUCT USED FOR UNKNOWN INDICATION
     Dosage: 2 G/DAY
     Route: 042
  4. CEFAZOLIN [Concomitant]
     Active Substance: CEFAZOLIN
     Dosage: UNK
  5. MANNITOL. [Concomitant]
     Active Substance: MANNITOL
     Indication: PRODUCT USED FOR UNKNOWN INDICATION
     Dosage: UNK
  6. LEVETIRACETAM. [Suspect]
     Active Substance: LEVETIRACETAM
     Indication: EPILEPSY
     Dosage: 750 MG, BID
     Route: 065
  7. ENOXAPARIN SODIUM. [Concomitant]
     Active Substance: ENOXAPARIN SODIUM
     Indication: PRODUCT USED FOR UNKNOWN INDICATION
     Dosage: 4000 IU PER DAY
     Route: 058
  8. MANNITOL. [Concomitant]
     Active Substance: MANNITOL
     Dosage: 100 ML, Q6H
     Route: 065

REACTIONS (12)
  - Drug interaction [Unknown]
  - Pyrexia [Recovered/Resolved]
  - Bone marrow failure [Recovered/Resolved]
  - Jaundice [Recovered/Resolved]
  - Pancytopenia [Recovered/Resolved]
  - Pneumonia [Recovered/Resolved]
  - Vomiting [Recovered/Resolved]
  - Dyspnoea [Recovering/Resolving]
  - Liver abscess [Recovered/Resolved]
  - Bacterial infection [Recovered/Resolved]
  - Abdominal pain [Recovered/Resolved]
  - Cholelithiasis [Recovered/Resolved]
